FAERS Safety Report 19327926 (Version 1)
Quarter: 2021Q2

REPORT INFORMATION
  Report Type: Report from Study
  Country: BR (occurrence: BR)
  Receive Date: 20210528
  Receipt Date: 20210528
  Transmission Date: 20210717
  Serious: Yes (Other)
  Sender: FDA-Public Use
  Company Number: NVSC2021BR066591

PATIENT
  Sex: Male

DRUGS (10)
  1. ADALIMUMAB [Suspect]
     Active Substance: ADALIMUMAB
     Indication: PRODUCT USED FOR UNKNOWN INDICATION
     Dosage: UNK, UNKNOWN
     Route: 065
  2. TRAUMEEL [Concomitant]
     Active Substance: HOMEOPATHICS
     Indication: ARTHRITIS
     Dosage: UNK
     Route: 065
  3. COSENTYX [Suspect]
     Active Substance: SECUKINUMAB
     Indication: ANKYLOSING SPONDYLITIS
     Dosage: 150 MG, QMO
     Route: 065
     Dates: start: 20180208
  4. DORENE [Concomitant]
     Active Substance: PREGABALIN
     Indication: PAIN
     Dosage: UNK, QD (ONE AT NIGHT)
     Route: 065
  5. COSENTYX [Suspect]
     Active Substance: SECUKINUMAB
     Dosage: 300 MG, QMO
     Route: 065
     Dates: start: 202102
  6. COSENTYX [Suspect]
     Active Substance: SECUKINUMAB
     Dosage: 300 MG, UNKNOWN
     Route: 065
     Dates: start: 20210317
  7. TRAUMEEL [Concomitant]
     Active Substance: HOMEOPATHICS
     Indication: PAIN
  8. COSENTYX [Suspect]
     Active Substance: SECUKINUMAB
     Dosage: 300 MG, QMO
     Route: 065
     Dates: end: 20210417
  9. REVANGE [Concomitant]
     Indication: PAIN
     Dosage: UNK
     Route: 065
  10. CIMZIA [Concomitant]
     Active Substance: CERTOLIZUMAB PEGOL
     Indication: PRODUCT USED FOR UNKNOWN INDICATION
     Dosage: UNK
     Route: 065

REACTIONS (20)
  - Arthralgia [Recovered/Resolved]
  - Swelling [Recovering/Resolving]
  - Joint dislocation [Not Recovered/Not Resolved]
  - Limb injury [Not Recovered/Not Resolved]
  - Drug ineffective [Unknown]
  - Neck pain [Recovering/Resolving]
  - Arthritis [Recovering/Resolving]
  - Joint swelling [Not Recovered/Not Resolved]
  - Pain [Recovering/Resolving]
  - Product use complaint [Unknown]
  - Back pain [Recovered/Resolved]
  - Limb discomfort [Recovering/Resolving]
  - Head discomfort [Not Recovered/Not Resolved]
  - Bone swelling [Recovering/Resolving]
  - Ankylosing spondylitis [Recovering/Resolving]
  - Pain in extremity [Recovered/Resolved]
  - Movement disorder [Recovered/Resolved]
  - Nerve injury [Recovering/Resolving]
  - Peripheral swelling [Recovered/Resolved]
  - Feeling abnormal [Not Recovered/Not Resolved]

NARRATIVE: CASE EVENT DATE: 2020
